FAERS Safety Report 26180666 (Version 1)
Quarter: 2025Q4

REPORT INFORMATION
  Report Type: Spontaneous
  Country: US (occurrence: US)
  Receive Date: 20251219
  Receipt Date: 20251219
  Transmission Date: 20260118
  Serious: No
  Sender: ABBVIE
  Company Number: US-ABBVIE-6595980

PATIENT

DRUGS (1)
  1. MAVYRET [Suspect]
     Active Substance: GLECAPREVIR\PIBRENTASVIR
     Indication: Chronic hepatitis C
     Route: 065

REACTIONS (7)
  - Viral load [Unknown]
  - Abdominal pain [Unknown]
  - Nasopharyngitis [Unknown]
  - Pyrexia [Unknown]
  - Vomiting [Unknown]
  - Drug resistance [Unknown]
  - Transaminases decreased [Unknown]

NARRATIVE: CASE EVENT DATE: 20250101
